FAERS Safety Report 15507149 (Version 2)
Quarter: 2018Q4

REPORT INFORMATION
  Report Type: Spontaneous
  Country: US (occurrence: US)
  Receive Date: 20181016
  Receipt Date: 20181016
  Transmission Date: 20190205
  Serious: No
  Sender: FDA-Public Use
  Company Number: US-BAYER-2018-192560

PATIENT
  Age: 19 Year
  Sex: Female

DRUGS (1)
  1. MIRENA [Suspect]
     Active Substance: LEVONORGESTREL
     Indication: GENITAL HAEMORRHAGE
     Dosage: 20 MCG/24HR, CONT
     Route: 015
     Dates: start: 201703, end: 20181014

REACTIONS (4)
  - Adverse drug reaction [None]
  - Off label use [None]
  - Product use in unapproved indication [None]
  - Intentional medical device removal by patient [None]

NARRATIVE: CASE EVENT DATE: 201703
